FAERS Safety Report 7020565 (Version 2)
Quarter: 2013Q1

REPORT INFORMATION
  Report Type: Spontaneous
  Country: US (occurrence: US)
  Receive Date: 20090612
  Receipt Date: 20130129
  Transmission Date: 20140127
  Serious: No
  Sender: FDA-Public Use
  Company Number: US-ABBOTT-09P-163-0572700-00

PATIENT
  Age: 62 Year
  Sex: Female
  Weight: 52.66 kg

DRUGS (3)
  1. HUMIRA 40 MG/0.8 ML PEN [Suspect]
     Indication: IMMUNE SYSTEM DISORDER
     Route: 058
     Dates: start: 200608
  2. HUMIRA 40 MG/0.8 ML PEN [Suspect]
  3. PEGASYS [Concomitant]
     Indication: HEPATITIS C
     Dates: start: 2008

REACTIONS (2)
  - Drug dose omission [Recovered/Resolved]
  - Inappropriate schedule of drug administration [Unknown]
